FAERS Safety Report 8296356-2 (Version None)
Quarter: 2012Q2

REPORT INFORMATION
  Report Type: 
  Country: None (occurrence: None)
  Receive Date: 20120418
  Receipt Date: 20120412
  Transmission Date: 20120825
  Serious: Yes (Hospitalization, Other)
  Sender: FDA-Public Use
  Company Number: US-ELI_LILLY_AND_COMPANY-US201203000796

PATIENT
  Sex: Female

DRUGS (9)
  1. HYDROCHLOROTHIAZIDE [Concomitant]
  2. ASPIRIN [Concomitant]
  3. PRILOSEC [Concomitant]
  4. FORTEO [Suspect]
     Indication: SENILE OSTEOPOROSIS
     Dosage: 20 UG, QD
     Route: 058
     Dates: end: 20120229
  5. METOPROLOL TARTRATE [Concomitant]
  6. VITAMIN B4 [Concomitant]
  7. LISINOPRIL [Concomitant]
  8. CALCIUM +D                         /00188401/ [Concomitant]
  9. SKELAXIN [Concomitant]

REACTIONS (1)
  - AORTIC VALVE DISEASE [None]
